FAERS Safety Report 17951195 (Version 2)
Quarter: 2025Q3

REPORT INFORMATION
  Report Type: Report from Study
  Country: US (occurrence: US)
  Receive Date: 20200626
  Receipt Date: 20250721
  Transmission Date: 20251021
  Serious: No
  Sender: SANOFI AVENTIS
  Company Number: US-SA-2020SA164969

PATIENT
  Age: 72 Year
  Sex: Male

DRUGS (9)
  1. DUPILUMAB [Suspect]
     Active Substance: DUPILUMAB
     Indication: Asthma
     Route: 058
     Dates: start: 20200530, end: 20200530
  2. DUPILUMAB [Suspect]
     Active Substance: DUPILUMAB
     Route: 058
     Dates: start: 20200613, end: 20200613
  3. DUPILUMAB [Suspect]
     Active Substance: DUPILUMAB
     Dosage: 300 MG, QOW
     Route: 058
     Dates: start: 20210318
  4. DUPILUMAB [Suspect]
     Active Substance: DUPILUMAB
     Dosage: 300 MG, Q3W
     Dates: start: 202501
  5. ATORVASTATIN [Concomitant]
     Active Substance: ATORVASTATIN
  6. TRELEGY ELLIPTA [Concomitant]
     Active Substance: FLUTICASONE FUROATE\UMECLIDINIUM BROMIDE\VILANTEROL TRIFENATATE
  7. RADICAVA [Concomitant]
     Active Substance: EDARAVONE
  8. LISINOPRIL [Concomitant]
     Active Substance: LISINOPRIL
  9. RILUZOLE [Concomitant]
     Active Substance: RILUZOLE

REACTIONS (2)
  - Extra dose administered [Unknown]
  - Inappropriate schedule of product administration [Unknown]

NARRATIVE: CASE EVENT DATE: 20200613
